FAERS Safety Report 9061216 (Version 1)
Quarter: 2013Q1

REPORT INFORMATION
  Report Type: Spontaneous
  Country: US (occurrence: US)
  Receive Date: 20130204
  Receipt Date: 20130204
  Transmission Date: 20140127
  Serious: No
  Sender: FDA-Public Use
  Company Number: US-009507513-1301USA013572

PATIENT
  Sex: Female

DRUGS (4)
  1. JANUMET [Suspect]
     Indication: DIABETES MELLITUS
     Dosage: 1 DF, BID
     Route: 048
     Dates: start: 201212
  2. PRAVASTATIN SODIUM [Concomitant]
     Dosage: UNK
     Dates: start: 201301
  3. GLIPIZIDE [Concomitant]
     Dosage: 10 MG, UNK
  4. DILTIAZEM HYDROCHLORIDE [Concomitant]
     Dosage: 180 MG, QD

REACTIONS (2)
  - Dry mouth [Not Recovered/Not Resolved]
  - Nausea [Not Recovered/Not Resolved]
